FAERS Safety Report 9314425 (Version 1)
Quarter: 2013Q2

REPORT INFORMATION
  Report Type: Spontaneous
  Country: US (occurrence: US)
  Receive Date: 20130529
  Receipt Date: 20130529
  Transmission Date: 20140414
  Serious: No
  Sender: FDA-Public Use
  Company Number: US-PFIZER INC-2013159322

PATIENT
  Age: 48 Year
  Sex: Female
  Weight: 56.69 kg

DRUGS (1)
  1. CHANTIX [Suspect]
     Indication: SMOKING CESSATION THERAPY
     Dosage: 1 MG, 2X/DAY
     Dates: start: 201302

REACTIONS (6)
  - Nasal discomfort [Unknown]
  - Swelling face [Unknown]
  - Nausea [Unknown]
  - Dry skin [Unknown]
  - Skin disorder [Unknown]
  - Intentional drug misuse [Unknown]
